FAERS Safety Report 6473382-7 (Version None)
Quarter: 2009Q4

REPORT INFORMATION
  Report Type: 
  Country: None (occurrence: None)
  Receive Date: 20091204
  Receipt Date: 20081229
  Transmission Date: 20100525
  Serious: Yes (Life-Threatening, Hospitalization)
  Sender: FDA-Public Use
  Company Number: DE-ELI_LILLY_AND_COMPANY-DE200811006363

PATIENT
  Sex: Male
  Weight: 90.2 kg

DRUGS (8)
  1. BYETTA [Suspect]
     Indication: TYPE 2 DIABETES MELLITUS
     Dosage: 10 UG, 2/D
     Route: 058
     Dates: start: 20080331, end: 20081105
  2. FUROSEMIDE [Concomitant]
     Dosage: 20 MG, UNKNOWN
     Route: 065
  3. SIMVASTATIN [Concomitant]
     Dosage: 20 MG, UNKNOWN
     Route: 065
  4. CANDESARTAN CILEXETIL [Concomitant]
     Dosage: 4 MG, UNKNOWN
     Route: 065
  5. ENALAPRIL [Concomitant]
     Dosage: 40 MG, UNKNOWN
     Route: 065
  6. AMLODIPINE [Concomitant]
     Dosage: 5 MG, UNKNOWN
     Route: 065
  7. NOVONORM [Concomitant]
     Dosage: 2 MG, 3/D
     Route: 065
  8. GLIMEPIRIDE [Concomitant]
     Dosage: 2 MG, UNKNOWN
     Route: 065

REACTIONS (6)
  - BILE DUCT CANCER [None]
  - BLOOD GLUCOSE ABNORMAL [None]
  - FATIGUE [None]
  - PANCREATIC CARCINOMA [None]
  - PRURITUS [None]
  - WEIGHT DECREASED [None]
